FAERS Safety Report 7657941-1 (Version None)
Quarter: 2011Q3

REPORT INFORMATION
  Report Type: 
  Country: None (occurrence: None)
  Receive Date: 20110805
  Receipt Date: 20110726
  Transmission Date: 20111222
  Serious: No
  Sender: FDA-Public Use
  Company Number: US-BIOGENIDEC-2011BI027910

PATIENT
  Age: 47 Year
  Sex: Female

DRUGS (1)
  1. AVONEX [Suspect]
     Indication: MULTIPLE SCLEROSIS
     Route: 030
     Dates: start: 20110101

REACTIONS (9)
  - MYALGIA [None]
  - OEDEMA PERIPHERAL [None]
  - CHILLS [None]
  - PAIN [None]
  - HYPERAESTHESIA [None]
  - COLD SWEAT [None]
  - TREMOR [None]
  - HYPERTENSION [None]
  - HEADACHE [None]
